FAERS Safety Report 21505095 (Version 1)
Quarter: 2022Q4

REPORT INFORMATION
  Report Type: Spontaneous
  Country: US (occurrence: US)
  Receive Date: 20221026
  Receipt Date: 20221026
  Transmission Date: 20230113
  Serious: Yes (Hospitalization)
  Sender: FDA-Public Use
  Company Number: US-MALLINCKRODT-T202205553

PATIENT
  Sex: Female

DRUGS (8)
  1. H.P. ACTHAR [Suspect]
     Active Substance: CORTICOTROPIN
     Indication: Infantile spasms
     Dosage: 0.3 ML TWICE DAILY (BID) FOR 14 DAYS
     Route: 030
     Dates: start: 20220915, end: 20220929
  2. H.P. ACTHAR [Suspect]
     Active Substance: CORTICOTROPIN
     Dosage: 0.1 ML EVERY MORNING (QD) FOR 3 DAYS
     Route: 030
     Dates: start: 20220930, end: 20221003
  3. H.P. ACTHAR [Suspect]
     Active Substance: CORTICOTROPIN
     Dosage: 0.07 ML EVERY MORNING (QD) FOR 3 DAYS
     Route: 030
     Dates: start: 20221004, end: 20221007
  4. H.P. ACTHAR [Suspect]
     Active Substance: CORTICOTROPIN
     Dosage: 0.05 ML EVERY MORNING FOR 3 DAYS
     Route: 065
     Dates: start: 20221008, end: 20221011
  5. H.P. ACTHAR [Suspect]
     Active Substance: CORTICOTROPIN
     Dosage: 0.05 ML EVERY OTHER MORNING (QOD) FOR 6 DAYS.
     Route: 065
     Dates: start: 20221012
  6. VIGABATRIN [Concomitant]
     Active Substance: VIGABATRIN
     Indication: Product used for unknown indication
     Dosage: MIX 1 PACKET (500 MG) IN 10 ML WATER AND GIVE 2.5ML TWO TIMES DAILY ON DAYS 1-3
     Route: 048
  7. VIGABATRIN [Concomitant]
     Active Substance: VIGABATRIN
     Dosage: THEN MIX 1 PACKET IN 10ML WATER AND GIVE 5ML BY MOUTH 2 TIMES DAILY ON DAYS 4-6
     Route: 048
  8. VIGABATRIN [Concomitant]
     Active Substance: VIGABATRIN
     Dosage: MIX 1 PACKET IN 10ML WATER AND GIVE 7.5ML BY MOUTH 2 TIMES DAILY THEREAFTER
     Route: 048

REACTIONS (1)
  - Hospitalisation [Unknown]

NARRATIVE: CASE EVENT DATE: 20220101
